FAERS Safety Report 6477704-2 (Version None)
Quarter: 2009Q4

REPORT INFORMATION
  Report Type: 
  Country: None (occurrence: None)
  Receive Date: 20091207
  Receipt Date: 20091127
  Transmission Date: 20100525
  Serious: Yes (Hospitalization)
  Sender: FDA-Public Use
  Company Number: JP-PFIZER INC-2009293584

PATIENT
  Age: 8 Year
  Sex: Male

DRUGS (1)
  1. GABAPEN [Suspect]
     Indication: EPILEPSY
     Dosage: UNK
     Route: 048

REACTIONS (2)
  - SOMNOLENCE [None]
  - STATUS EPILEPTICUS [None]
